FAERS Safety Report 24540539 (Version 1)
Quarter: 2024Q4

REPORT INFORMATION
  Report Type: Spontaneous
  Country: GB (occurrence: GB)
  Receive Date: 20241023
  Receipt Date: 20241023
  Transmission Date: 20250115
  Serious: Yes (Other)
  Sender: TEVA
  Company Number: None

PATIENT
  Age: 76 Year
  Sex: Male

DRUGS (12)
  1. DEXAMETHASONE [Suspect]
     Active Substance: DEXAMETHASONE
     Dosage: TAKE ONE DAILY
     Route: 065
  2. MORPHINE SULFATE [Concomitant]
     Active Substance: MORPHINE SULFATE
     Dosage: TAKE 2.5-5 ML EVERY FOUR HOURS WHEN NECESSARY, 10 MG/5 ML
     Route: 048
  3. EDOXABAN [Concomitant]
     Active Substance: EDOXABAN
     Dosage: TAKE ONE TABLET ONCE DAILY, 14 TABLET
  4. AMITRIPTYLINE [Concomitant]
     Active Substance: AMITRIPTYLINE
     Dosage: HALF A TABLET- ONE TABLET AT NIGHT
     Route: 065
  5. ENSURE [Concomitant]
     Active Substance: AMINO ACIDS\DEXTROSE\ELECTROLYTES NOS\SOYBEAN OIL\VITAMINS
     Dosage: TAKE 1 OR 2 A DAY AS DIRECTED BY ONCOLOGY 3500 ML, COMPACT LIQUID VANILLA
  6. ACETAMINOPHEN [Concomitant]
     Active Substance: ACETAMINOPHEN
     Dosage: TWO TABLETS,
  7. FOLIC ACID [Concomitant]
     Active Substance: FOLIC ACID
     Dosage: 400MCG ONCE DAILY
  8. LANSOPRAZOLE [Concomitant]
     Active Substance: LANSOPRAZOLE
  9. 3M CAVILON ANTIFUNGAL [Concomitant]
     Active Substance: MICONAZOLE NITRATE
     Dosage: USE AS DIRECTED 92 GRAM, DURABLE BARRIER CREAM
  10. NOVORAPID [Concomitant]
     Active Substance: INSULIN ASPART
     Dosage: USE AS DIRECTED-10 UNITS EVERY MORNING, 8 UNITS LUNCHTIME, 18 UNITS TEA TIME, FLEXPEN 100 UNIT/ML...
  11. TOUJEO [Concomitant]
     Active Substance: INSULIN GLARGINE
     Dosage: USE AS DIRECTED, 18 UNITS EVERY MORNING, 300 UNITS/ML, 1.5 ML PRE-FILLED SOLOSTAR PENS
  12. MORPHINE SULFATE [Concomitant]
     Active Substance: MORPHINE SULFATE

REACTIONS (1)
  - Hyperglycaemia [Unknown]
